FAERS Safety Report 23655116 (Version 2)
Quarter: 2024Q3

REPORT INFORMATION
  Report Type: Spontaneous
  Country: DE (occurrence: DE)
  Receive Date: 20240320
  Receipt Date: 20240726
  Transmission Date: 20241016
  Serious: Yes (Other)
  Sender: TEVA
  Company Number: None

PATIENT
  Age: 17 Month
  Sex: Female

DRUGS (1)
  1. GLATIRAMER ACETATE [Suspect]
     Active Substance: GLATIRAMER ACETATE
     Indication: Multiple sclerosis relapse
     Dosage: UP TO THE 20TH WEEK OF PREGNANCY , GLATIRAMERACETAT
     Route: 064

REACTIONS (7)
  - Brain abscess [Unknown]
  - Streptococcus test positive [Unknown]
  - CSF culture positive [Unknown]
  - Fall [Unknown]
  - Foetal exposure during pregnancy [Unknown]
  - Pyrexia [Unknown]
  - Cerebrospinal fluid leakage [Unknown]
